FAERS Safety Report 7926115-9 (Version None)
Quarter: 2011Q4

REPORT INFORMATION
  Report Type: 
  Country: None (occurrence: None)
  Receive Date: 20111118
  Receipt Date: 20110418
  Transmission Date: 20120403
  Serious: No
  Sender: FDA-Public Use
  Company Number: US-AMGEN-USASP2011020470

PATIENT
  Sex: Male

DRUGS (1)
  1. ENBREL [Suspect]
     Indication: RHEUMATOID ARTHRITIS
     Dates: start: 20090424

REACTIONS (3)
  - BLOOD COUNT ABNORMAL [None]
  - UNEVALUABLE EVENT [None]
  - GLYCOSYLATED HAEMOGLOBIN DECREASED [None]
